FAERS Safety Report 14572725 (Version 1)
Quarter: 2018Q1

REPORT INFORMATION
  Report Type: Spontaneous
  Country: US (occurrence: US)
  Receive Date: 20180226
  Receipt Date: 20180226
  Transmission Date: 20180509
  Serious: No
  Sender: FDA-Public Use
  Company Number: US-MISSION PHARMACAL COMPANY-2042554

PATIENT
  Age: 45 Year
  Sex: Male

DRUGS (4)
  1. UROCIT-K [Suspect]
     Active Substance: POTASSIUM CITRATE
     Indication: CYSTINURIA
     Route: 065
  2. TRAZODONE [Concomitant]
     Active Substance: TRAZODONE HYDROCHLORIDE
     Route: 065
  3. THIOLA [Concomitant]
     Active Substance: TIOPRONIN
     Route: 065
     Dates: start: 20180210
  4. ALPRAZOLAM. [Concomitant]
     Active Substance: ALPRAZOLAM
     Route: 065

REACTIONS (1)
  - Gastrooesophageal reflux disease [Unknown]
